FAERS Safety Report 25183277 (Version 1)
Quarter: 2025Q2

REPORT INFORMATION
  Report Type: Spontaneous
  Country: US (occurrence: None)
  Receive Date: 20250409
  Receipt Date: 20250409
  Transmission Date: 20250717
  Serious: Yes (Hospitalization)
  Sender: FDA-CTU
  Company Number: None

PATIENT
  Age: 94 Year
  Sex: Male
  Weight: 74 kg

DRUGS (1)
  1. SULFAMETHOXAZOLE AND TRIMETHOPRIM [Suspect]
     Active Substance: SULFAMETHOXAZOLE\TRIMETHOPRIM
     Indication: Infection prophylaxis

REACTIONS (9)
  - Neutropenia [None]
  - Therapy cessation [None]
  - Myelodysplastic syndrome [None]
  - Lymphoma [None]
  - Aplastic anaemia [None]
  - Anaemia of chronic disease [None]
  - Drug ineffective [None]
  - Refusal of treatment by relative [None]
  - Autoimmune disorder [None]

NARRATIVE: CASE EVENT DATE: 20250116
